FAERS Safety Report 5075086-4 (Version None)
Quarter: 2006Q3

REPORT INFORMATION
  Report Type: 
  Country: None (occurrence: None)
  Receive Date: 20060803
  Receipt Date: 20060803
  Transmission Date: 20061208
  Serious: Yes (Life-Threatening, Disabling)
  Sender: FDA-Public Use
  Company Number: None

PATIENT
  Sex: Female
  Weight: 90.7194 kg

DRUGS (1)
  1. CEFAZOLIN [Suspect]
     Indication: PREOPERATIVE CARE
     Dosage: 1 GRAM     1 TIME PREOP   IV DRIP
     Route: 041
     Dates: start: 20060802, end: 20060802

REACTIONS (4)
  - EYE SWELLING [None]
  - PRURITUS [None]
  - THROAT TIGHTNESS [None]
  - WHEEZING [None]
